FAERS Safety Report 9619771 (Version 3)
Quarter: 2014Q3

REPORT INFORMATION
  Report Type: Spontaneous
  Country: JP (occurrence: JP)
  Receive Date: 20131014
  Receipt Date: 20140813
  Transmission Date: 20150326
  Serious: Yes (Other)
  Sender: FDA-Public Use
  Company Number: JP-GLAXOSMITHKLINE-B0926717A

PATIENT
  Age: 42 Year
  Sex: Male
  Weight: 80 kg

DRUGS (10)
  1. LIDOCAINE HCL + EPINEPHRINE [Concomitant]
     Indication: INFILTRATION ANAESTHESIA
     Dosage: 12.6ML PER DAY
     Route: 058
  2. AZELNIDIPINE [Concomitant]
     Active Substance: AZELNIDIPINE
     Indication: HYPERTENSION
     Route: 048
  3. CANDESARTAN CILEXETIL. [Concomitant]
     Active Substance: CANDESARTAN CILEXETIL
     Indication: HYPERTENSION
     Route: 048
  4. ULTIVA [Suspect]
     Active Substance: REMIFENTANIL HYDROCHLORIDE
     Indication: INDUCTION OF ANAESTHESIA
     Route: 042
  5. CARVEDILOL. [Suspect]
     Active Substance: CARVEDILOL
     Indication: HYPERTENSION
     Dosage: 10MG PER DAY
     Route: 048
  6. PROPOFOL. [Concomitant]
     Active Substance: PROPOFOL
     Indication: INDUCTION OF ANAESTHESIA
     Route: 042
  7. VASODILATORS [Concomitant]
     Indication: HYPERTENSION
     Route: 048
  8. FENTANYL CITRATE. [Concomitant]
     Active Substance: FENTANYL CITRATE
     Indication: INDUCTION OF ANAESTHESIA
     Route: 042
  9. ROCURONIUM BROMIDE. [Concomitant]
     Active Substance: ROCURONIUM BROMIDE
     Indication: INDUCTION OF ANAESTHESIA
     Route: 042
  10. ANTIHYPERTENSIVES [Concomitant]
     Active Substance: UNSPECIFIED INGREDIENT
     Indication: HYPERTENSION
     Route: 048

REACTIONS (2)
  - Sinus arrest [Recovered/Resolved]
  - Drug interaction [Unknown]
